FAERS Safety Report 5814848-X (Version None)
Quarter: 2008Q3

REPORT INFORMATION
  Report Type: 
  Country: None (occurrence: None)
  Receive Date: 20080718
  Receipt Date: 20080708
  Transmission Date: 20090109
  Serious: Yes (Hospitalization)
  Sender: FDA-Public Use
  Company Number: ES-AMGEN-UK292881

PATIENT
  Sex: Male

DRUGS (2)
  1. PANITUMUMAB [Suspect]
     Indication: SQUAMOUS CELL CARCINOMA
     Route: 042
     Dates: start: 20080604
  2. PANITUMUMAB - STUDY PROCEDURE [Suspect]

REACTIONS (2)
  - CONSTIPATION [None]
  - PYREXIA [None]
